FAERS Safety Report 8828895 (Version 1)
Quarter: 2012Q4

REPORT INFORMATION
  Report Type: 
  Country: CO (occurrence: CO)
  Receive Date: 20121008
  Receipt Date: 20121008
  Transmission Date: 20130627
  Serious: Yes (Other)
  Sender: FDA-Public Use
  Company Number: CO-PFIZER INC-2012248650

PATIENT
  Age: 54 Year
  Sex: Female

DRUGS (2)
  1. LYRICA [Suspect]
     Indication: NEURALGIA
     Dosage: 75 mg, 1x/day
     Route: 048
     Dates: start: 201207, end: 20120919
  2. CARBAMAZEPINE [Concomitant]
     Indication: NEURALGIA
     Dosage: 200 mg, 3x/day
     Route: 048
     Dates: start: 2008

REACTIONS (1)
  - Facial nerve disorder [Recovered/Resolved]
